FAERS Safety Report 10619545 (Version 1)
Quarter: 2014Q4

REPORT INFORMATION
  Report Type: Spontaneous
  Country: DE (occurrence: DE)
  Receive Date: 20141202
  Receipt Date: 20141202
  Transmission Date: 20150529
  Serious: Yes (Other)
  Sender: FDA-Public Use
  Company Number: DE-ASTRAZENECA-2014SE90810

PATIENT
  Age: 33 Year
  Sex: Female
  Weight: 97 kg

DRUGS (14)
  1. METHYLDOPA. [Suspect]
     Active Substance: METHYLDOPA
     Indication: RENAL HYPERTENSION
     Route: 048
     Dates: start: 2010, end: 20140114
  2. AMLODIPINE [Concomitant]
     Active Substance: AMLODIPINE BESYLATE
     Indication: RENAL HYPERTENSION
     Dosage: 7.5 [MG/D (2.5-0-5) ]
     Route: 048
  3. BETAMETHASONE [Concomitant]
     Active Substance: BETAMETHASONE
     Indication: MATERNAL THERAPY TO ENHANCE FOETAL LUNG MATURITY
     Dosage: IN WEEK 25+3, 25+4 AND AGAIN IN WEEK 28+0
     Route: 065
  4. PROGRAF [Suspect]
     Active Substance: TACROLIMUS\TACROLIMUS ANHYDROUS
     Indication: PROPHYLAXIS AGAINST TRANSPLANT REJECTION
     Dosage: 5.5 [MG/D (3-0-2.5 MG/D) ]
     Route: 048
     Dates: start: 2007, end: 20140114
  5. ADALAT [Concomitant]
     Active Substance: NIFEDIPINE
     Indication: TOCOLYSIS
     Route: 042
  6. L-THYROXIN 25 HENNING [Concomitant]
     Indication: HYPOTHYROIDISM
     Route: 048
     Dates: start: 20130702, end: 20140114
  7. DEKRISTOL 20000 I.E. [Concomitant]
     Indication: VITAMIN SUPPLEMENTATION
     Route: 048
     Dates: start: 2007, end: 20131217
  8. METOPROLOL SUCCINATE. [Suspect]
     Active Substance: METOPROLOL SUCCINATE
     Indication: RENAL HYPERTENSION
     Dosage: 142.5 [MG/D (95-0-47.5) ]
     Route: 048
     Dates: start: 2012, end: 20131217
  9. METOPROLOL SUCCINATE. [Suspect]
     Active Substance: METOPROLOL SUCCINATE
     Indication: RENAL HYPERTENSION
     Dosage: BELOC ZOK MITE, 70.75 [MG/D (47.5-0-23.75) ]
     Route: 048
     Dates: start: 20140114
  10. DAS GESUNDE PLUS - FOLS?URE 600 [Concomitant]
     Indication: PROPHYLAXIS OF NEURAL TUBE DEFECT
     Route: 048
     Dates: start: 20130702, end: 20131217
  11. PARTUSISTEN [Concomitant]
     Active Substance: FENOTEROL
     Indication: TOCOLYSIS
     Route: 042
     Dates: start: 20140114, end: 20140114
  12. AZATHIOPRINE. [Suspect]
     Active Substance: AZATHIOPRINE
     Indication: PROPHYLAXIS AGAINST TRANSPLANT REJECTION
     Dosage: DOSAGE WAS INCREASED DURING PREGNANCY FROM 50 TO 100 MG/D
     Route: 048
     Dates: start: 20130702, end: 20140114
  13. AZATHIOPRINE. [Suspect]
     Active Substance: AZATHIOPRINE
     Indication: PROPHYLAXIS AGAINST TRANSPLANT REJECTION
     Route: 048
     Dates: start: 2012
  14. AMPICILLIN [Concomitant]
     Active Substance: AMPICILLIN
     Indication: ANTIBIOTIC PROPHYLAXIS
     Route: 065
     Dates: start: 20140114, end: 20140114

REACTIONS (4)
  - Cervical incompetence [Unknown]
  - Premature labour [Unknown]
  - Exposure during pregnancy [Unknown]
  - Polyhydramnios [Recovered/Resolved]

NARRATIVE: CASE EVENT DATE: 2013
